FAERS Safety Report 5691858-7 (Version None)
Quarter: 2008Q2

REPORT INFORMATION
  Report Type: 
  Country: None (occurrence: None)
  Receive Date: 20080401
  Receipt Date: 20080401
  Transmission Date: 20081010
  Serious: Yes (Hospitalization)
  Sender: FDA-Public Use
  Company Number: None

PATIENT
  Age: 87 Year
  Sex: Male
  Weight: 61.23 kg

DRUGS (1)
  1. GLYBURIDE [Suspect]
     Indication: DIABETES MELLITUS
     Dosage: 1.25MG EVERY DAY OTHER
     Route: 050
     Dates: start: 20080228, end: 20080319

REACTIONS (3)
  - CHEST PAIN [None]
  - DEHYDRATION [None]
  - HYPOGLYCAEMIA [None]
